FAERS Safety Report 7259788-7 (Version None)
Quarter: 2011Q1

REPORT INFORMATION
  Report Type: 
  Country: None (occurrence: None)
  Receive Date: 20110130
  Receipt Date: 20100913
  Transmission Date: 20110831
  Serious: No
  Sender: FDA-Public Use
  Company Number: US-ABBOTT-10P-163-0671111-00

PATIENT
  Sex: Male
  Weight: 81.72 kg

DRUGS (2)
  1. HUMIRA [Suspect]
     Indication: PSORIATIC ARTHROPATHY
     Dates: start: 20091001, end: 20100811
  2. PSORIASIS CREAM [Concomitant]
     Indication: PSORIASIS

REACTIONS (3)
  - PSORIASIS [None]
  - DERMATITIS [None]
  - DRUG INEFFECTIVE [None]
